FAERS Safety Report 7280200-6 (Version None)
Quarter: 2011Q1

REPORT INFORMATION
  Report Type: 
  Country: None (occurrence: None)
  Receive Date: 20110208
  Receipt Date: 20110131
  Transmission Date: 20110831
  Serious: Yes (Hospitalization)
  Sender: FDA-Public Use
  Company Number: US-JNJFOC-20110200401

PATIENT
  Sex: Female
  Weight: 99.79 kg

DRUGS (2)
  1. WELLBUTRIN [Concomitant]
     Indication: DEPRESSION
     Route: 048
  2. RISPERDAL CONSTA [Suspect]
     Indication: SCHIZOAFFECTIVE DISORDER
     Route: 030

REACTIONS (8)
  - NECK PAIN [None]
  - MOOD ALTERED [None]
  - BACK PAIN [None]
  - CHRONIC OBSTRUCTIVE PULMONARY DISEASE [None]
  - BRAIN NEOPLASM BENIGN [None]
  - FEELING ABNORMAL [None]
  - PANIC ATTACK [None]
  - ANXIETY [None]
